FAERS Safety Report 8496793-7 (Version None)
Quarter: 2012Q3

REPORT INFORMATION
  Report Type: 
  Country: None (occurrence: None)
  Receive Date: 20120709
  Receipt Date: 20120702
  Transmission Date: 20120928
  Serious: Yes (Hospitalization, Other)
  Sender: FDA-Public Use
  Company Number: PHHY2012AR056920

PATIENT
  Age: 55 Year
  Sex: Female

DRUGS (1)
  1. GILENYA [Suspect]
     Indication: MULTIPLE SCLEROSIS
     Dosage: 0.5 MG, QD
     Route: 048
     Dates: start: 20111220

REACTIONS (6)
  - ACUTE ABDOMEN [None]
  - PYREXIA [None]
  - VOMITING [None]
  - SPLENOMEGALY [None]
  - PYELONEPHRITIS [None]
  - ABDOMINAL PAIN [None]
